FAERS Safety Report 19845618 (Version 1)
Quarter: 2021Q3

REPORT INFORMATION
  Report Type: Spontaneous
  Country: CN (occurrence: CN)
  Receive Date: 20210916
  Receipt Date: 20210916
  Transmission Date: 20211014
  Serious: Yes (Hospitalization, Other)
  Sender: FDA-Public Use
  Company Number: CN-PFIZER INC-202101177139

PATIENT
  Age: 7 Day
  Sex: Female
  Weight: .81 kg

DRUGS (1)
  1. FLUCONAZOLE. [Suspect]
     Active Substance: FLUCONAZOLE
     Indication: ANTIFUNGAL PROPHYLAXIS
     Dosage: 2.5 MG, ALTERNATE DAY
     Route: 041
     Dates: start: 20210726, end: 20210824

REACTIONS (1)
  - Neonatal hyponatraemia [Recovering/Resolving]

NARRATIVE: CASE EVENT DATE: 20210824
